FAERS Safety Report 25172005 (Version 1)
Quarter: 2025Q2

REPORT INFORMATION
  Report Type: Report from Study
  Country: US (occurrence: US)
  Receive Date: 20250408
  Receipt Date: 20250408
  Transmission Date: 20250717
  Serious: Yes (Other)
  Sender: ALEXION PHARMACEUTICALS
  Company Number: US-AstraZeneca-CH-00841010A

PATIENT

DRUGS (1)
  1. OLAPARIB [Suspect]
     Active Substance: OLAPARIB
     Route: 065

REACTIONS (16)
  - Neuropathy peripheral [Unknown]
  - Diarrhoea [Unknown]
  - Decreased appetite [Unknown]
  - Body height abnormal [Unknown]
  - Weight abnormal [Unknown]
  - Asthenia [Unknown]
  - Rhinorrhoea [Unknown]
  - Fatigue [Unknown]
  - Osteopenia [Unknown]
  - Oral pain [Unknown]
  - Headache [Unknown]
  - Rash [Unknown]
  - Muscle atrophy [Unknown]
  - Arthralgia [Unknown]
  - Product dose omission issue [Unknown]
  - Increased need for sleep [Unknown]
